FAERS Safety Report 5957046-1 (Version None)
Quarter: 2008Q4

REPORT INFORMATION
  Report Type: 
  Country: None (occurrence: None)
  Receive Date: 20081118
  Receipt Date: 20081015
  Transmission Date: 20090506
  Serious: No
  Sender: FDA-Public Use
  Company Number: A0752014A

PATIENT
  Age: 51 Year
  Sex: Male

DRUGS (3)
  1. COREG CR [Suspect]
     Indication: HYPERTENSION
     Dosage: 80MG PER DAY
     Route: 048
     Dates: start: 20081007
  2. LISINOPRIL [Concomitant]
  3. CYMBALTA [Concomitant]

REACTIONS (2)
  - DIZZINESS [None]
  - FATIGUE [None]
